FAERS Safety Report 20308138 (Version 2)
Quarter: 2022Q1

REPORT INFORMATION
  Report Type: Spontaneous
  Country: US (occurrence: US)
  Receive Date: 20220107
  Receipt Date: 20220127
  Transmission Date: 20220423
  Serious: No
  Sender: FDA-Public Use
  Company Number: US-ALLERGAN-2144247US

PATIENT
  Sex: Female

DRUGS (5)
  1. BOTOX [Suspect]
     Active Substance: ONABOTULINUMTOXINA
     Indication: Migraine
     Dosage: UNK, SINGLE
  2. QULIPTA [Suspect]
     Active Substance: ATOGEPANT
     Indication: Product used for unknown indication
     Dosage: 40 MILLIGRAM QD
     Dates: start: 20211223
  3. MODERNA COVID-19 VACCINE [Concomitant]
     Active Substance: ELASOMERAN
  4. Migraine infusion shots [Concomitant]
     Indication: Migraine
  5. UNSPECIFIED INGREDIENT [Concomitant]
     Active Substance: UNSPECIFIED INGREDIENT
     Indication: Migraine

REACTIONS (3)
  - Injection site pain [Recovered/Resolved]
  - Tenderness [Unknown]
  - Incorrect dose administered [Unknown]
